FAERS Safety Report 19976323 (Version 1)
Quarter: 2021Q4

REPORT INFORMATION
  Report Type: Spontaneous
  Country: US (occurrence: US)
  Receive Date: 20211021
  Receipt Date: 20211021
  Transmission Date: 20220303
  Serious: No
  Sender: FDA-Public Use
  Company Number: US-Y-MABS THERAPEUTICS-2120821

PATIENT
  Sex: Male

DRUGS (3)
  1. DANYELZA [Suspect]
     Active Substance: NAXITAMAB-GQGK
     Route: 042
  2. DILAUDID [Concomitant]
     Active Substance: HYDROMORPHONE HYDROCHLORIDE
  3. RISPERDAL [Concomitant]
     Active Substance: RISPERIDONE

REACTIONS (3)
  - Behaviour disorder [Unknown]
  - Pain [Unknown]
  - Infusion related reaction [Unknown]
